FAERS Safety Report 4908013-8 (Version None)
Quarter: 2006Q1

REPORT INFORMATION
  Report Type: 
  Country: None (occurrence: None)
  Receive Date: 20060210
  Receipt Date: 20051109
  Transmission Date: 20060701
  Serious: Yes (Disabling)
  Sender: FDA-Public Use
  Company Number: FR-GLAXOSMITHKLINE-B0400957A

PATIENT
  Age: 55 Year
  Sex: Male

DRUGS (5)
  1. FLIXOTIDE DISKUS [Suspect]
     Indication: BRONCHOPNEUMOPATHY
     Route: 055
     Dates: start: 20030301
  2. BECOTIDE [Suspect]
     Indication: BRONCHOPNEUMOPATHY
     Dosage: 4PUFF PER DAY
     Route: 055
     Dates: start: 19950101, end: 20030301
  3. SINGULAIR [Concomitant]
     Indication: BRONCHOPNEUMOPATHY
     Dosage: 10MG PER DAY
     Route: 048
     Dates: start: 20001001
  4. BRONCHODUAL [Concomitant]
     Indication: BRONCHOPNEUMOPATHY
     Dosage: 3UNIT PER DAY
     Route: 055
     Dates: start: 20011201
  5. MONOTILDIEM [Concomitant]
     Dosage: 200MG PER DAY
     Route: 048
     Dates: start: 19950101

REACTIONS (4)
  - OSTEOPENIA [None]
  - OSTEOPOROSIS [None]
  - SPINAL COMPRESSION FRACTURE [None]
  - SPINAL FRACTURE [None]
